FAERS Safety Report 7964227-4 (Version None)
Quarter: 2011Q4

REPORT INFORMATION
  Report Type: 
  Country: None (occurrence: None)
  Receive Date: 20111208
  Receipt Date: 20111202
  Transmission Date: 20120403
  Serious: Yes (Hospitalization)
  Sender: FDA-Public Use
  Company Number: US-B.I. PHARMACEUTICALS,INC./RIDGEFIELD-2011-BP-26120BP

PATIENT
  Sex: Male
  Weight: 75.75 kg

DRUGS (5)
  1. ASPIRIN [Concomitant]
  2. VENLAFAXINE [Concomitant]
  3. PRADAXA [Suspect]
     Indication: ATRIAL FIBRILLATION
     Dosage: 300 MG
     Dates: start: 20110501, end: 20111101
  4. DULOXETINE HYDROCHLORIDE [Concomitant]
  5. MEMANTINE [Concomitant]

REACTIONS (3)
  - FALL [None]
  - HAEMOTHORAX [None]
  - RIB FRACTURE [None]
